FAERS Safety Report 5934155-4 (Version None)
Quarter: 2008Q4

REPORT INFORMATION
  Report Type: 
  Country: None (occurrence: None)
  Receive Date: 20081029
  Receipt Date: 20081024
  Transmission Date: 20090506
  Serious: Yes (Hospitalization)
  Sender: FDA-Public Use
  Company Number: A0753988A

PATIENT
  Age: 63 Year
  Sex: Female
  Weight: 56.4 kg

DRUGS (6)
  1. AVANDIA [Suspect]
     Indication: DIABETES MELLITUS
     Dosage: 4MG TWICE PER DAY
     Route: 048
     Dates: start: 19990101, end: 20070501
  2. METFORMIN HYDROCHLORIDE [Concomitant]
  3. TRICOR [Concomitant]
  4. ACTONEL [Concomitant]
  5. METOPROLOL TARTRATE [Concomitant]
  6. LISINOPRIL [Concomitant]

REACTIONS (3)
  - FEMORAL ARTERIAL STENOSIS [None]
  - MYOCARDIAL INFARCTION [None]
  - PAIN [None]
